FAERS Safety Report 4604246-9 (Version None)
Quarter: 2005Q1

REPORT INFORMATION
  Report Type: 
  Country: None (occurrence: None)
  Receive Date: 20050308
  Receipt Date: 20050308
  Transmission Date: 20050727
  Serious: Yes (Hospitalization)
  Sender: FDA-Public Use
  Company Number: None

PATIENT
  Age: 45 Year
  Sex: Female

DRUGS (4)
  1. PLAQUENIL [Suspect]
     Indication: ARTHRITIS
     Dosage: BID [CHRONIC]
  2. PLAQUENIL [Suspect]
     Indication: SYSTEMIC LUPUS ERYTHEMATOSUS
     Dosage: BID [CHRONIC]
  3. ASPIRIN [Concomitant]
  4. NAPROSYN [Concomitant]

REACTIONS (6)
  - DYSARTHRIA [None]
  - HEADACHE [None]
  - HYPOAESTHESIA [None]
  - MENTAL STATUS CHANGES [None]
  - RASH [None]
  - THROMBOTIC THROMBOCYTOPENIC PURPURA [None]
